FAERS Safety Report 5679141-7 (Version None)
Quarter: 2008Q1

REPORT INFORMATION
  Report Type: 
  Country: None (occurrence: None)
  Receive Date: 20080325
  Receipt Date: 20080321
  Transmission Date: 20080703
  Serious: Yes (Hospitalization)
  Sender: FDA-Public Use
  Company Number: FR-MERCK-0801FRA00010

PATIENT
  Age: 36 Year
  Sex: Male
  Weight: 45 kg

DRUGS (12)
  1. ISENTRESS [Suspect]
     Indication: HIV INFECTION
     Route: 048
     Dates: start: 20071015, end: 20071128
  2. ISENTRESS [Suspect]
     Route: 048
     Dates: start: 20080124
  3. ABACAVIR SULFATE [Concomitant]
     Indication: HIV INFECTION
     Route: 048
     Dates: start: 20071015, end: 20071112
  4. DARUNAVIR [Concomitant]
     Indication: HIV INFECTION
     Route: 048
     Dates: start: 20070515, end: 20071128
  5. DARUNAVIR [Concomitant]
     Route: 048
     Dates: start: 20080124
  6. RITONAVIR [Concomitant]
     Indication: HIV INFECTION
     Route: 048
     Dates: start: 20060502, end: 20071128
  7. RITONAVIR [Concomitant]
     Route: 048
     Dates: start: 20080124
  8. EMTRICITABINE AND TENOFOVIR DISOPROXIL FUMARATE [Concomitant]
     Indication: HIV INFECTION
     Route: 048
     Dates: start: 20070130, end: 20071128
  9. SULFAMETHOXAZOLE AND TRIMETHOPRIM [Concomitant]
     Indication: PROPHYLAXIS
     Route: 048
  10. GABAPENTIN [Concomitant]
     Indication: EPILEPSY
     Route: 048
  11. ABACAVIR SULFATE AND LAMIVUDINE [Concomitant]
     Indication: HIV INFECTION
     Route: 048
     Dates: start: 20080124
  12. [THERAPY UNSPECIFIED] [Concomitant]
     Route: 048
     Dates: start: 20080124

REACTIONS (5)
  - ACUTE GENERALISED EXANTHEMATOUS PUSTULOSIS [None]
  - DIARRHOEA [None]
  - HAEMOLYTIC ANAEMIA [None]
  - IMMUNE RECONSTITUTION SYNDROME [None]
  - RENAL TUBULAR NECROSIS [None]
